FAERS Safety Report 6763262-1 (Version None)
Quarter: 2010Q2

REPORT INFORMATION
  Report Type: 
  Country: None (occurrence: None)
  Receive Date: 20100610
  Receipt Date: 20100527
  Transmission Date: 20101027
  Serious: Yes (Hospitalization)
  Sender: FDA-Public Use
  Company Number: GB-RANBAXY-2010RR-34126

PATIENT
  Age: 53 Year
  Sex: Male
  Weight: 82 kg

DRUGS (4)
  1. GABAPENTIN [Suspect]
     Indication: NEURALGIA
     Dosage: 300 MG, TID
     Route: 048
     Dates: start: 20100303, end: 20100418
  2. FLUTICASONE PROPIONATE [Concomitant]
     Indication: ASTHMA
     Dosage: 250 UG, BID
     Route: 055
     Dates: start: 20080515, end: 20100310
  3. OMEPRAZOLE [Concomitant]
     Indication: GASTROOESOPHAGEAL REFLUX DISEASE
     Dosage: 20 MG, QD
     Route: 048
     Dates: start: 20071022, end: 20100505
  4. VENTOLIN [Concomitant]
     Indication: ASTHMA
     Dosage: 100 UG, PRN
     Route: 055
     Dates: start: 20081215, end: 20100119

REACTIONS (4)
  - ALCOHOL USE [None]
  - CONVULSION [None]
  - DRUG DOSE OMISSION [None]
  - TREATMENT NONCOMPLIANCE [None]
